FAERS Safety Report 24113740 (Version 1)
Quarter: 2024Q3

REPORT INFORMATION
  Report Type: Spontaneous
  Country: IN (occurrence: IN)
  Receive Date: 20240720
  Receipt Date: 20240720
  Transmission Date: 20241016
  Serious: Yes (Death, Hospitalization)
  Sender: AMGEN
  Company Number: IN-AMGEN-INDSP2024138035

PATIENT
  Age: 63 Year
  Sex: Female

DRUGS (3)
  1. FILGRASTIM [Suspect]
     Active Substance: FILGRASTIM
     Indication: Neutropenia
     Dosage: 300 MICROGRAM (CONTINUOUS)
     Route: 058
  2. ACYCLOVIR [Concomitant]
     Active Substance: ACYCLOVIR
     Indication: Herpes virus infection
  3. LEVETIRACETAM [Concomitant]
     Active Substance: LEVETIRACETAM
     Indication: Product used for unknown indication
     Dosage: 500 MILLIGRAM, TWICE DAILY
     Route: 042

REACTIONS (5)
  - Cardio-respiratory arrest [Fatal]
  - General physical health deterioration [Unknown]
  - Somnolence [Unknown]
  - Dyskinesia [Unknown]
  - Lung opacity [Unknown]
